FAERS Safety Report 21247601 (Version 1)
Quarter: 2022Q3

REPORT INFORMATION
  Report Type: Spontaneous
  Country: US (occurrence: None)
  Receive Date: 20220823
  Receipt Date: 20220823
  Transmission Date: 20221027
  Serious: No
  Sender: FDA-Public Use
  Company Number: None

PATIENT
  Age: 67 Year
  Sex: Female

DRUGS (2)
  1. PAXLOVID [Suspect]
     Active Substance: NIRMATRELVIR\RITONAVIR
     Indication: COVID-19
     Dosage: OTHER QUANTITY : 300-150MG;?FREQUENCY : TWICE A DAY;?
     Route: 048
     Dates: start: 20220723, end: 20220728
  2. NIRMATRELVIR\RITONAVIR [Suspect]
     Active Substance: NIRMATRELVIR\RITONAVIR
     Indication: COVID-19
     Dosage: 300-150 MG BID ORAL
     Dates: start: 20220723, end: 20220728

REACTIONS (1)
  - Rash [None]

NARRATIVE: CASE EVENT DATE: 20220806
